FAERS Safety Report 9101642 (Version 1)
Quarter: 2013Q1

REPORT INFORMATION
  Report Type: Spontaneous
  Country: US (occurrence: US)
  Receive Date: 20130218
  Receipt Date: 20130218
  Transmission Date: 20140127
  Serious: Yes (Disabling)
  Sender: FDA-Public Use
  Company Number: US-ASTRAZENECA-2013SE08997

PATIENT
  Age: 63 Year
  Sex: Female
  Weight: 90.7 kg

DRUGS (11)
  1. OMEPRAZOLE [Suspect]
     Indication: GASTROOESOPHAGEAL REFLUX DISEASE
     Route: 048
     Dates: start: 2012
  2. BACLOFEN [Concomitant]
     Indication: MUSCLE DISORDER
     Dates: start: 2011
  3. TAZANDINE [Concomitant]
  4. IBUPROFEN [Concomitant]
  5. GABAPENTIN [Concomitant]
  6. AMETROZALE [Concomitant]
  7. ISOPRIL [Concomitant]
  8. SYNTHROID [Concomitant]
  9. AMIODIPONE [Concomitant]
  10. VITAMINS [Concomitant]
  11. STOOL SOFTNER [Concomitant]
     Indication: FAECES HARD

REACTIONS (4)
  - Fall [Not Recovered/Not Resolved]
  - Choking sensation [Not Recovered/Not Resolved]
  - Drug ineffective [Not Recovered/Not Resolved]
  - Gastrooesophageal reflux disease [Not Recovered/Not Resolved]
